FAERS Safety Report 7299995-0 (Version None)
Quarter: 2011Q1

REPORT INFORMATION
  Report Type: 
  Country: None (occurrence: None)
  Receive Date: 20110217
  Receipt Date: 20110215
  Transmission Date: 20110831
  Serious: Yes (Death, Hospitalization, Other)
  Sender: FDA-Public Use
  Company Number: US-AMGEN-USASP2011004965

PATIENT
  Age: 38 Year
  Sex: Female
  Weight: 73.7 kg

DRUGS (5)
  1. NPLATE [Suspect]
     Indication: THROMBOCYTOPENIA
     Dosage: 2 A?G/KG, UNK
     Dates: start: 20101005, end: 20110125
  2. DOXIL [Concomitant]
     Dosage: UNK
     Dates: start: 20101124
  3. CYCLOPHOSPHAMIDE [Concomitant]
     Dosage: UNK
     Dates: start: 20101124
  4. VINCRISTINE [Concomitant]
     Dosage: UNK
     Dates: start: 20101124
  5. NPLATE [Suspect]
     Dates: start: 20101005

REACTIONS (6)
  - PANCYTOPENIA [None]
  - OEDEMA PERIPHERAL [None]
  - VOMITING [None]
  - NAUSEA [None]
  - DYSPNOEA [None]
  - NEOPLASM MALIGNANT [None]
